FAERS Safety Report 4668787-0 (Version None)
Quarter: 2005Q2

REPORT INFORMATION
  Report Type: 
  Country: None (occurrence: None)
  Receive Date: 20050523
  Receipt Date: 20050202
  Transmission Date: 20051028
  Serious: Yes (Other)
  Sender: FDA-Public Use
  Company Number: PHNU2005DE00767

PATIENT
  Sex: Female

DRUGS (3)
  1. MELPHALAN [Concomitant]
     Route: 065
  2. PREDNI-M-TABLINEN [Concomitant]
     Route: 048
  3. ZOMETA [Suspect]
     Indication: PLASMACYTOMA

REACTIONS (4)
  - CYST REMOVAL [None]
  - OSTEONECROSIS [None]
  - SURGERY [None]
  - TOOTH EXTRACTION [None]
